FAERS Safety Report 5034944-7 (Version None)
Quarter: 2006Q2

REPORT INFORMATION
  Report Type: 
  Country: None (occurrence: None)
  Receive Date: 20060622
  Receipt Date: 20060622
  Transmission Date: 20061013
  Serious: Yes (Life-Threatening, Hospitalization)
  Sender: FDA-Public Use
  Company Number: None

PATIENT
  Age: 42 Year
  Sex: Male
  Weight: 63.5036 kg

DRUGS (1)
  1. PROPRANOLOL [Suspect]
     Indication: HYPERTHYROIDISM
     Dosage: 20 MG ONCE PO
     Route: 048
     Dates: start: 20060501, end: 20060501

REACTIONS (3)
  - ATRIOVENTRICULAR BLOCK COMPLETE [None]
  - BRADYCARDIA [None]
  - CARDIAC ARREST [None]
